FAERS Safety Report 21591453 (Version 1)
Quarter: 2022Q4

REPORT INFORMATION
  Report Type: Spontaneous
  Country: US (occurrence: US)
  Receive Date: 20221114
  Receipt Date: 20221114
  Transmission Date: 20230113
  Serious: No
  Sender: FDA-Public Use
  Company Number: US-XERIS PHARMACEUTICALS-2022XER00367

PATIENT
  Age: 50 Year
  Sex: Female
  Weight: 68.934 kg

DRUGS (4)
  1. GVOKE [Suspect]
     Active Substance: GLUCAGON
     Indication: Type 1 diabetes mellitus
     Dosage: 1 MG, AS NEEDED; ADMINISTERED TO RIGHT THIGH
  2. GVOKE [Suspect]
     Active Substance: GLUCAGON
     Indication: Blood glucose decreased
  3. UNSPECIFIED INSULIN VIA PUMP [Concomitant]
     Dosage: LEFT LEG
  4. UNSPECIFIED INGREDIENT [Concomitant]
     Active Substance: UNSPECIFIED INGREDIENT

REACTIONS (6)
  - Device malfunction [Recovered/Resolved]
  - Exposure via skin contact [Recovered/Resolved]
  - Drug ineffective [Recovered/Resolved]
  - Anxiety [Recovered/Resolved]
  - Incorrect dose administered by device [Recovered/Resolved]
  - Extra dose administered [Recovered/Resolved]

NARRATIVE: CASE EVENT DATE: 20221001
